FAERS Safety Report 9300899 (Version 1)
Quarter: 2013Q2

REPORT INFORMATION
  Report Type: Spontaneous
  Country: US (occurrence: US)
  Receive Date: 20130521
  Receipt Date: 20130521
  Transmission Date: 20140414
  Serious: Yes (Hospitalization, Other)
  Sender: FDA-Public Use
  Company Number: US-ELI_LILLY_AND_COMPANY-US201305003852

PATIENT
  Sex: Male
  Weight: 108.84 kg

DRUGS (12)
  1. PROZAC [Suspect]
     Indication: DEPRESSION
     Dosage: UNK UNK, UNKNOWN
  2. ZOLOFT [Concomitant]
     Indication: DEPRESSION
     Dosage: UNK UNK, UNKNOWN
  3. CRESTOR [Concomitant]
     Indication: BLOOD CHOLESTEROL INCREASED
     Dosage: 5 MG, QD
  4. SYNTHROID [Concomitant]
     Indication: THYROID DISORDER
     Dosage: 37.5 MG, QD
  5. EFFEXOR [Concomitant]
     Indication: DEPRESSION
     Dosage: UNK, UNKNOWN
  6. TOFRANIL [Concomitant]
     Indication: DEPRESSION
     Dosage: UNK, UNKNOWN
  7. CELEXA [Concomitant]
     Indication: DEPRESSION
     Dosage: UNK, UNKNOWN
  8. ALPRAZOLAM [Concomitant]
     Indication: ANXIETY
     Dosage: UNK, UNKNOWN
  9. EMSAM [Concomitant]
     Indication: DEPRESSION
     Dosage: UNK, UNKNOWN
  10. ACIPHEX [Concomitant]
     Indication: GASTROOESOPHAGEAL REFLUX DISEASE
     Dosage: 20 MG, QD
  11. PAXIL [Concomitant]
     Dosage: UNK, UNKNOWN
  12. XANAX [Concomitant]
     Indication: ANXIETY
     Dosage: 2 MG, QID

REACTIONS (4)
  - Myocardial infarction [Unknown]
  - Palpitations [Unknown]
  - Anxiety [Unknown]
  - Drug ineffective [Unknown]
